FAERS Safety Report 11680143 (Version 3)
Quarter: 2015Q4

REPORT INFORMATION
  Report Type: Spontaneous
  Country: US (occurrence: US)
  Receive Date: 20151027
  Receipt Date: 20151110
  Transmission Date: 20160304
  Serious: No
  Sender: FDA-Public Use
  Company Number: US-ELI_LILLY_AND_COMPANY-US201005007202

PATIENT
  Age: 88 Year
  Sex: Female

DRUGS (8)
  1. FORTEO [Suspect]
     Active Substance: TERIPARATIDE
     Indication: OSTEOPOROSIS
     Dosage: 20 UG, DAILY (1/D)
     Route: 065
     Dates: start: 20100519
  2. FORTEO [Suspect]
     Active Substance: TERIPARATIDE
     Dosage: 20 UG, QD
  3. FORTEO [Suspect]
     Active Substance: TERIPARATIDE
     Dosage: 20 UG, QD
  4. FORTEO [Suspect]
     Active Substance: TERIPARATIDE
     Dosage: 20 UG, QD
  5. FORTEO [Suspect]
     Active Substance: TERIPARATIDE
     Dosage: 20 UG, DAILY (1/D)
     Route: 065
  6. FORTEO [Suspect]
     Active Substance: TERIPARATIDE
     Dosage: 20 UG, DAILY (1/D)
  7. FORTEO [Suspect]
     Active Substance: TERIPARATIDE
     Dosage: 20 UG, DAILY (1/D)
  8. CREON [Concomitant]
     Active Substance: PANCRELIPASE AMYLASE\PANCRELIPASE LIPASE\PANCRELIPASE PROTEASE
     Indication: PROPHYLAXIS AGAINST DIARRHOEA
     Dosage: UNK, UNKNOWN

REACTIONS (13)
  - Memory impairment [Unknown]
  - Pruritus [Unknown]
  - Contusion [Unknown]
  - Somnolence [Unknown]
  - Malaise [Unknown]
  - Constipation [Not Recovered/Not Resolved]
  - Ephelides [Unknown]
  - Muscle spasms [Recovered/Resolved]
  - Injection site erythema [Not Recovered/Not Resolved]
  - Rash [Recovered/Resolved]
  - Joint injury [Unknown]
  - Pruritus [Not Recovered/Not Resolved]
  - Intentional product misuse [Unknown]

NARRATIVE: CASE EVENT DATE: 201005
